FAERS Safety Report 14690382 (Version 1)
Quarter: 2018Q1

REPORT INFORMATION
  Report Type: Spontaneous
  Country: US (occurrence: US)
  Receive Date: 20180328
  Receipt Date: 20180328
  Transmission Date: 20180509
  Serious: Yes (Hospitalization)
  Sender: FDA-Public Use
  Company Number: US-ENDO PHARMACEUTICALS INC-2018-025842

PATIENT
  Sex: Male

DRUGS (3)
  1. XIAFLEX [Suspect]
     Active Substance: COLLAGENASE CLOSTRIDIUM HISTOLYTICUM
     Dosage: SECOND CYCLE; TWO INJECTIONS IN THE PENIS
     Route: 026
     Dates: start: 201801
  2. XIAFLEX [Suspect]
     Active Substance: COLLAGENASE CLOSTRIDIUM HISTOLYTICUM
     Dosage: FIRST CYCLE; TWO INJECTIONS IN THE PENIS
     Route: 026
     Dates: start: 201711
  3. XIAFLEX [Suspect]
     Active Substance: COLLAGENASE CLOSTRIDIUM HISTOLYTICUM
     Indication: PEYRONIE^S DISEASE
     Dosage: THIRD CYCLE; TWO INJECTIONS IN THE PENIS
     Route: 026
     Dates: start: 201803, end: 201803

REACTIONS (2)
  - Corpora cavernosa surgery [Recovered/Resolved]
  - Fracture of penis [Recovered/Resolved]

NARRATIVE: CASE EVENT DATE: 201803
